FAERS Safety Report 15111188 (Version 1)
Quarter: 2018Q3

REPORT INFORMATION
  Report Type: Spontaneous
  Country: CN (occurrence: CN)
  Receive Date: 20180705
  Receipt Date: 20180705
  Transmission Date: 20181010
  Serious: Yes (Hospitalization)
  Sender: FDA-Public Use
  Company Number: CN-MYLANLABS-2018M1049387

PATIENT
  Age: 47 Year
  Sex: Male

DRUGS (4)
  1. CLOZAPINE. [Suspect]
     Active Substance: CLOZAPINE
     Dosage: 275 MG, QD
  2. CLOZAPINE. [Suspect]
     Active Substance: CLOZAPINE
     Dosage: 300 MG, QD
  3. CLOZAPINE. [Suspect]
     Active Substance: CLOZAPINE
     Indication: SCHIZOAFFECTIVE DISORDER
     Dosage: 250 MG, QD
  4. CLOZAPINE. [Suspect]
     Active Substance: CLOZAPINE
     Dosage: 275 MG, QD

REACTIONS (5)
  - Upper respiratory tract infection bacterial [Unknown]
  - Psychotic disorder [Unknown]
  - Leukocytosis [Unknown]
  - Infection [Recovered/Resolved]
  - Influenza [Recovered/Resolved]
